FAERS Safety Report 11713298 (Version 1)
Quarter: 2015Q4

REPORT INFORMATION
  Report Type: Report from Study
  Country: GB (occurrence: GB)
  Receive Date: 20151109
  Receipt Date: 20151109
  Transmission Date: 20160304
  Serious: Yes (Other)
  Sender: FDA-Public Use
  Company Number: GB-UCBSA-2015035393

PATIENT
  Age: 43 Year
  Sex: Male

DRUGS (1)
  1. CERTOLIZUMAB PEGOL [Suspect]
     Active Substance: CERTOLIZUMAB PEGOL
     Indication: RHEUMATOID ARTHRITIS
     Dosage: 400 MG (200 MG X 2), EV 2 WEEKS(QOW)
     Route: 058
     Dates: start: 20151016

REACTIONS (3)
  - Urinary tract infection [Unknown]
  - Dizziness [Unknown]
  - Pruritus [Unknown]

NARRATIVE: CASE EVENT DATE: 201510
